FAERS Safety Report 17597345 (Version 2)
Quarter: 2020Q1

REPORT INFORMATION
  Report Type: Spontaneous
  Country: CA (occurrence: CA)
  Receive Date: 20200330
  Receipt Date: 20200331
  Transmission Date: 20200409
  Serious: Yes (Other)
  Sender: FDA-Public Use
  Company Number: CA-CELLTRION INC.-2020CA019510

PATIENT

DRUGS (5)
  1. NEXIUM MUPS [ESOMEPRAZOLE MAGNESIUM] [Concomitant]
     Active Substance: ESOMEPRAZOLE MAGNESIUM
     Dosage: UNK
     Route: 065
  2. INFLECTRA [Suspect]
     Active Substance: INFLIXIMAB-DYYB
     Indication: CROHN^S DISEASE
     Dosage: 400 MG, INDUCTION 0, 2, 6 WEEKS; MAINTENANCE EVERY 8 WEEKS
     Route: 042
     Dates: start: 20200310, end: 20200310
  3. AZATHIOPRINE. [Concomitant]
     Active Substance: AZATHIOPRINE
     Dosage: 2.5 MG/KG, UNK
     Route: 065
     Dates: start: 2005
  4. OLMESARTAN [Concomitant]
     Active Substance: OLMESARTAN
     Dosage: UNK
     Route: 065
  5. PRANOL [DIOSMIN] [Concomitant]
     Dosage: UNK
     Route: 065

REACTIONS (5)
  - Off label use [Unknown]
  - Nausea [Unknown]
  - Insomnia [Unknown]
  - Rheumatoid arthritis [Not Recovered/Not Resolved]
  - Intentional product use issue [Unknown]

NARRATIVE: CASE EVENT DATE: 202003
